FAERS Safety Report 9891680 (Version 1)
Quarter: 2014Q1

REPORT INFORMATION
  Report Type: Spontaneous
  Country: US (occurrence: None)
  Receive Date: 20140211
  Receipt Date: 20140211
  Transmission Date: 20141002
  Serious: Yes (Life-Threatening, Hospitalization)
  Sender: FDA-Public Use
  Company Number: None

PATIENT
  Age: 45 Year
  Sex: Male
  Weight: 116 kg

DRUGS (7)
  1. ENALAPRIL [Suspect]
     Route: 048
     Dates: start: 20140207, end: 20140207
  2. CLONIDINE [Concomitant]
  3. AMLODIPINE [Concomitant]
  4. CIPROFLOXACIN [Concomitant]
  5. GUAIFENESIN [Concomitant]
  6. HCTZ [Concomitant]
  7. PROMETHAZINE [Concomitant]

REACTIONS (6)
  - Choking sensation [None]
  - Swollen tongue [None]
  - Lip swelling [None]
  - Pharyngeal oedema [None]
  - Speech disorder [None]
  - Respiratory distress [None]
